FAERS Safety Report 7918253-1 (Version None)
Quarter: 2011Q4

REPORT INFORMATION
  Report Type: 
  Country: None (occurrence: None)
  Receive Date: 20111116
  Receipt Date: 20111107
  Transmission Date: 20120403
  Serious: Yes (Hospitalization)
  Sender: FDA-Public Use
  Company Number: US-GLAXOSMITHKLINE-A0952181A

PATIENT
  Age: 71 Year
  Sex: Male

DRUGS (14)
  1. SIMVASTATIN [Concomitant]
  2. LISINOPRIL [Concomitant]
  3. XALATAN [Concomitant]
  4. FISH OIL [Concomitant]
  5. ALBUTEROL [Suspect]
     Route: 065
  6. HUMALOG [Concomitant]
  7. ADVAIR DISKUS 100/50 [Suspect]
     Indication: ASTHMA
     Dosage: 1PUFF TWICE PER DAY
     Route: 055
  8. LASIX [Concomitant]
  9. SINGULAIR [Concomitant]
  10. AMLODIPINE [Concomitant]
  11. LANTUS [Concomitant]
  12. FLUTICASONE PROPIONATE [Concomitant]
  13. COSOPT [Concomitant]
  14. ASPIRIN [Concomitant]

REACTIONS (2)
  - DYSPNOEA [None]
  - ASTHMA [None]
